FAERS Safety Report 11274792 (Version 2)
Quarter: 2015Q3

REPORT INFORMATION
  Report Type: Report from Study
  Country: PL (occurrence: PL)
  Receive Date: 20150716
  Receipt Date: 20150720
  Transmission Date: 20151125
  Serious: Yes (Life-Threatening, Disabling, Other)
  Sender: FDA-Public Use
  Company Number: PL-AMGEN-POLCT2015045343

PATIENT
  Age: 36 Year
  Sex: Female
  Weight: 51 kg

DRUGS (17)
  1. URSODEOXYCHOLIC ACID [Concomitant]
     Active Substance: URSODIOL
     Dosage: 1 UNK, UNK
     Route: 048
     Dates: start: 20150417
  2. NACL [Concomitant]
     Active Substance: SODIUM CHLORIDE
     Dosage: 1000 ML, UNK
     Route: 042
     Dates: start: 20150422, end: 20150509
  3. METHOTREXATE [Concomitant]
     Active Substance: METHOTREXATE
     Dosage: 15 MG, UNK
     Route: 037
     Dates: start: 20150417, end: 20150417
  4. BLINATUMOMAB [Suspect]
     Active Substance: BLINATUMOMAB
     Indication: ACUTE LYMPHOCYTIC LEUKAEMIA
     Dosage: 28 MUG, UNK
     Route: 041
     Dates: start: 20150423
  5. KETOPROFENUM [Concomitant]
     Dosage: 50-100 MG, UNK
     Route: 042
     Dates: start: 20150426, end: 20150426
  6. OMEPRAZOLUM [Concomitant]
     Dosage: 200 MG, UNK
     Route: 048
     Dates: start: 20150417, end: 20150523
  7. RED BLOOD CELLS [Concomitant]
     Active Substance: HUMAN RED BLOOD CELL
     Dosage: 2-5 UNK, UNK
     Route: 042
     Dates: start: 20150501, end: 20150522
  8. METOPROLOL [Concomitant]
     Active Substance: METOPROLOL
     Dosage: 12.5 MG, UNK
     Route: 048
     Dates: start: 20150504, end: 20150508
  9. PARACETAMOLUM [Concomitant]
     Dosage: 1 G, UNK
     Route: 042
     Dates: start: 20150506, end: 20150506
  10. DEXAMETHASONE. [Concomitant]
     Active Substance: DEXAMETHASONE
     Dosage: 4-20 MG, UNK
     Route: 037
     Dates: start: 20150417
  11. ACYCLOVIR                          /00587301/ [Concomitant]
     Active Substance: ACYCLOVIR
     Dosage: 250-500 MG, UNK
     Route: 048
     Dates: start: 20150507, end: 20150614
  12. PLATELETS [Concomitant]
     Active Substance: HUMAN PLATELET, ALLOGENIC
     Indication: HAEMORRHAGE PROPHYLAXIS
     Dosage: 1-5 UNK, UNK
     Route: 042
     Dates: start: 20150506, end: 20150522
  13. ALLOPURINOLUM [Concomitant]
     Dosage: 1 UNK, UNK
     Route: 048
     Dates: start: 20140417
  14. ESTAZOLAMUM [Concomitant]
     Dosage: 2 MG, UNK
     Route: 048
     Dates: start: 20150501, end: 20150502
  15. BISEPTOL [Concomitant]
     Active Substance: SULFAMETHOXAZOLE\TRIMETHOPRIM
     Dosage: 960 MG, UNK
     Route: 048
     Dates: start: 20150507
  16. KALII CHLORIDUM [Concomitant]
     Dosage: 1-9 G, UNK
     Route: 048
     Dates: start: 20150417, end: 20150524
  17. CYTOSINE ARABINOSIDE [Concomitant]
     Active Substance: CYTARABINE
     Dosage: 40 MG, UNK
     Route: 037
     Dates: start: 20150417, end: 20150417

REACTIONS (1)
  - Depressed level of consciousness [Not Recovered/Not Resolved]

NARRATIVE: CASE EVENT DATE: 20150508
